FAERS Safety Report 21772999 (Version 2)
Quarter: 2023Q1

REPORT INFORMATION
  Report Type: Spontaneous
  Country: CN (occurrence: CN)
  Receive Date: 20221223
  Receipt Date: 20230112
  Transmission Date: 20230417
  Serious: Yes (Other)
  Sender: FDA-Public Use
  Company Number: CN-ALLERGAN-2241928US

PATIENT

DRUGS (1)
  1. OZURDEX [Suspect]
     Active Substance: DEXAMETHASONE
     Indication: Necrotising retinitis
     Dosage: 0.7 MG, SINGLE
     Route: 031

REACTIONS (2)
  - Rhegmatogenous retinal detachment [Unknown]
  - Off label use [Unknown]
